FAERS Safety Report 16112649 (Version 1)
Quarter: 2019Q1

REPORT INFORMATION
  Report Type: Spontaneous
  Country: CN (occurrence: CN)
  Receive Date: 20190325
  Receipt Date: 20190325
  Transmission Date: 20190418
  Serious: Yes (Hospitalization)
  Sender: FDA-Public Use
  Company Number: CN-BAYER-2019-055164

PATIENT
  Age: 56 Year
  Sex: Male

DRUGS (3)
  1. AVELOX [Suspect]
     Active Substance: MOXIFLOXACIN HYDROCHLORIDE
     Indication: LUNG INFECTION
     Dosage: 400 MG, QD
     Route: 041
     Dates: start: 20190304, end: 20190309
  2. AVELOX [Suspect]
     Active Substance: MOXIFLOXACIN HYDROCHLORIDE
     Indication: INFECTIVE EXACERBATION OF CHRONIC OBSTRUCTIVE AIRWAYS DISEASE
  3. AVELOX [Suspect]
     Active Substance: MOXIFLOXACIN HYDROCHLORIDE
     Indication: RESPIRATORY FAILURE

REACTIONS (5)
  - Diabetes mellitus [None]
  - Poor quality sleep [None]
  - Hepatic steatosis [None]
  - Decreased appetite [None]
  - Depressed mood [None]

NARRATIVE: CASE EVENT DATE: 201903
